FAERS Safety Report 6807066-X (Version None)
Quarter: 2010Q2

REPORT INFORMATION
  Report Type: 
  Country: None (occurrence: None)
  Receive Date: 20100629
  Receipt Date: 20080717
  Transmission Date: 20101027
  Serious: No
  Sender: FDA-Public Use
  Company Number: US-PFIZER INC-2008054896

PATIENT
  Sex: Female
  Weight: 69.85 kg

DRUGS (3)
  1. XANAX [Suspect]
     Indication: PANIC ATTACK
     Dates: start: 19910101
  2. ALPRAZOLAM [Suspect]
     Indication: PANIC ATTACK
     Dates: start: 19960101, end: 19960101
  3. MANDELAMINE [Concomitant]

REACTIONS (1)
  - RASH [None]
